FAERS Safety Report 6194183-3 (Version None)
Quarter: 2009Q2

REPORT INFORMATION
  Report Type: 
  Country: None (occurrence: None)
  Receive Date: 20090518
  Receipt Date: 20090508
  Transmission Date: 20091009
  Serious: Yes (Other)
  Sender: FDA-Public Use
  Company Number: GB-MERCK-0905GBR00023

PATIENT
  Age: 65 Year
  Sex: Female
  Weight: 66 kg

DRUGS (7)
  1. SINGULAIR [Suspect]
     Indication: ASTHMA
     Route: 048
     Dates: start: 20090101
  2. AMLODIPINE [Suspect]
     Indication: BLOOD PRESSURE ABNORMAL
     Route: 048
  3. OMEPRAZOLE [Suspect]
     Indication: HIATUS HERNIA
     Route: 048
  4. FLUTICASONE PROPIONATE AND SALMETEROL XINAFOATE [Suspect]
     Indication: ASTHMA
     Dates: start: 20040101
  5. ALBUTEROL SULFATE [Suspect]
     Indication: ASTHMA
  6. DIHYDROCODEINE [Concomitant]
     Route: 065
  7. TRIAMCINOLONE [Concomitant]
     Route: 065

REACTIONS (4)
  - ASTHMA [None]
  - COUGH [None]
  - DYSPNOEA [None]
  - INCREASED UPPER AIRWAY SECRETION [None]
